FAERS Safety Report 7561393-X (Version None)
Quarter: 2011Q2

REPORT INFORMATION
  Report Type: 
  Country: None (occurrence: None)
  Receive Date: 20110621
  Receipt Date: 20100810
  Transmission Date: 20111010
  Serious: No
  Sender: FDA-Public Use
  Company Number: US-ASTRAZENECA-2010SE37569

PATIENT
  Age: 72 Year
  Sex: Female
  Weight: 68 kg

DRUGS (16)
  1. PREVENTION MEDICATIONS [Concomitant]
  2. SYNTHROID [Concomitant]
  3. EVISTA [Concomitant]
  4. AGRYLIN [Concomitant]
  5. DOCUSATE [Concomitant]
  6. FIBRE, DIETARY [Concomitant]
  7. ASPIRIN [Concomitant]
  8. CALCIUM CARBONATE [Concomitant]
  9. LASIX [Concomitant]
  10. LORATADINE [Concomitant]
  11. BROVANA [Suspect]
     Indication: RESPIRATORY FAILURE
     Dosage: 15 UG/2 ML BID
     Route: 055
     Dates: start: 20080101
  12. ACTONEL [Concomitant]
  13. FISH OIL [Concomitant]
  14. PULMICORT FLEXHALER [Suspect]
     Indication: RESPIRATORY FAILURE
     Route: 055
     Dates: start: 20070101
  15. TOPROL-XL [Concomitant]
  16. ZOCOR [Concomitant]

REACTIONS (2)
  - DYSPNOEA [None]
  - WRONG TECHNIQUE IN DRUG USAGE PROCESS [None]
